APPROVED DRUG PRODUCT: ATOVAQUONE
Active Ingredient: ATOVAQUONE
Strength: 750MG/5ML
Dosage Form/Route: SUSPENSION;ORAL
Application: A202960 | Product #001 | TE Code: AB
Applicant: AMNEAL PHARMACEUTICALS
Approved: Mar 18, 2014 | RLD: No | RS: No | Type: RX